FAERS Safety Report 6749271-7 (Version None)
Quarter: 2010Q2

REPORT INFORMATION
  Report Type: 
  Country: None (occurrence: None)
  Receive Date: 20100601
  Receipt Date: 20100526
  Transmission Date: 20101027
  Serious: Yes (Life-Threatening, Hospitalization)
  Sender: FDA-Public Use
  Company Number: PHHY2010DE29062

PATIENT
  Age: 59 Year
  Sex: Female
  Weight: 62 kg

DRUGS (9)
  1. HYDROCHLOROTHIAZIDE [Suspect]
     Indication: HYPERTENSION
     Dosage: 1 DF, UNK
     Route: 048
     Dates: start: 20091201, end: 20100221
  2. TORSEMIDE [Suspect]
     Indication: CARDIAC FAILURE CHRONIC
     Dosage: 1 TABLET PER DAY
     Route: 048
     Dates: start: 20100107, end: 20100221
  3. TORSEMIDE [Suspect]
     Dosage: 10 MG PER DAY
     Route: 048
  4. TORSEMIDE [Suspect]
     Dosage: 20 MG PER DAY
     Route: 048
  5. SPIRONOLACTONE [Suspect]
     Indication: RENAL FAILURE CHRONIC
     Dosage: 1 DF, UNK
     Route: 048
     Dates: start: 20100107, end: 20100221
  6. SPIRONOLACTONE [Suspect]
     Dosage: UNK
     Dates: start: 20100224
  7. RAMIPRIL [Suspect]
     Indication: HYPERTENSION
     Dosage: 1 DF, UNK
     Route: 048
     Dates: start: 20091201, end: 20100221
  8. BISOPROLOL [Suspect]
     Indication: HYPERTENSION
     Route: 048
     Dates: start: 20091201
  9. SIMVASTATIN [Suspect]
     Indication: ISCHAEMIC HEART DISEASE PROPHYLAXIS
     Dosage: UNK
     Dates: start: 20091201

REACTIONS (7)
  - ACUTE PRERENAL FAILURE [None]
  - BLOOD PRESSURE DECREASED [None]
  - DEHYDRATION [None]
  - DEPRESSED LEVEL OF CONSCIOUSNESS [None]
  - DIARRHOEA [None]
  - GENERAL PHYSICAL HEALTH DETERIORATION [None]
  - RENAL FAILURE ACUTE [None]
